FAERS Safety Report 5133913-6 (Version None)
Quarter: 2006Q4

REPORT INFORMATION
  Report Type: 
  Country: None (occurrence: None)
  Receive Date: 20061023
  Receipt Date: 20061023
  Transmission Date: 20070319
  Serious: Yes (Hospitalization)
  Sender: FDA-Public Use
  Company Number: None

PATIENT
  Sex: Female
  Weight: 63.9572 kg

DRUGS (1)
  1. ORTHO EVRA [Suspect]
     Indication: CONTRACEPTION
     Dosage: ONE PATCH CHANGE EVERY 7 DAY TRANSDERMAL
     Route: 062
     Dates: start: 20020801, end: 20061003

REACTIONS (5)
  - DIZZINESS [None]
  - HYPOAESTHESIA [None]
  - NEUROLOGICAL EXAMINATION ABNORMAL [None]
  - PARAESTHESIA [None]
  - TRANSIENT ISCHAEMIC ATTACK [None]
